FAERS Safety Report 8969927 (Version 1)
Quarter: 2012Q4

REPORT INFORMATION
  Report Type: 
  Country: US (occurrence: US)
  Receive Date: 20121218
  Receipt Date: 20121218
  Transmission Date: 20130627
  Serious: No
  Sender: FDA-Public Use
  Company Number: US-BRISTOL-MYERS SQUIBB COMPANY-16227050

PATIENT
  Age: 70 Year
  Sex: Female
  Weight: 65.76 kg

DRUGS (4)
  1. ABILIFY [Suspect]
     Indication: MAJOR DEPRESSION
     Dosage: Started with Abilify 2 mg once daily 6 weeks ago,Stopped in a few months,Weaned off
  2. EFFEXOR [Concomitant]
  3. IMITREX [Concomitant]
     Indication: CONVULSION
  4. SEROQUEL [Concomitant]

REACTIONS (4)
  - Weight increased [Unknown]
  - Increased appetite [Unknown]
  - Fatigue [Unknown]
  - Incontinence [Unknown]
